FAERS Safety Report 21989537 (Version 1)
Quarter: 2023Q1

REPORT INFORMATION
  Report Type: Other
  Country: ES (occurrence: ES)
  Receive Date: 20230214
  Receipt Date: 20230214
  Transmission Date: 20230418
  Serious: Yes (Other)
  Sender: FDA-Public Use
  Company Number: ES-Bion-011139

PATIENT
  Age: 49 Year
  Sex: Female

DRUGS (2)
  1. NAPROXEN SODIUM [Suspect]
     Active Substance: NAPROXEN SODIUM
     Indication: Suicide attempt
     Dosage: TWO EMPTY BLISTER PACKS
  2. LORAZEPAM [Concomitant]
     Active Substance: LORAZEPAM
     Indication: Suicide attempt

REACTIONS (3)
  - Compartment syndrome [Unknown]
  - Intentional overdose [Unknown]
  - Suicide attempt [Unknown]
